FAERS Safety Report 16558680 (Version 1)
Quarter: 2019Q3

REPORT INFORMATION
  Report Type: Report from Study
  Country: AU (occurrence: IN)
  Receive Date: 20190711
  Receipt Date: 20190711
  Transmission Date: 20191004
  Serious: Yes (Death)
  Sender: FDA-Public Use
  Company Number: AU-PFIZER INC-2019289689

PATIENT
  Age: 12 Year
  Sex: Female

DRUGS (1)
  1. BENZATHINE BENZYLPENICILLIN [Suspect]
     Active Substance: PENICILLIN G BENZATHINE
     Indication: MITRAL VALVE STENOSIS
     Dosage: UNK (DORSOGLUTEAL MUSCLE)
     Route: 042

REACTIONS (1)
  - Death [Fatal]
